FAERS Safety Report 7447031-5 (Version None)
Quarter: 2011Q2

REPORT INFORMATION
  Report Type: 
  Country: None (occurrence: None)
  Receive Date: 20110429
  Receipt Date: 20110419
  Transmission Date: 20111010
  Serious: Yes (Hospitalization)
  Sender: FDA-Public Use
  Company Number: JP-JNJFOC-20110404304

PATIENT
  Age: 66 Year
  Sex: Female

DRUGS (1)
  1. RISPERDAL CONSTA [Suspect]
     Indication: ANXIETY DISORDER
     Route: 030

REACTIONS (2)
  - DRUG ADMINISTRATION ERROR [None]
  - MOOD ALTERED [None]
